FAERS Safety Report 9688797 (Version 5)
Quarter: 2014Q1

REPORT INFORMATION
  Report Type: Spontaneous
  Country: IT (occurrence: None)
  Receive Date: 20131112
  Receipt Date: 20140110
  Transmission Date: 20141002
  Serious: Yes (Other)
  Sender: FDA-Public Use
  Company Number: AUR-APL-2013-09397

PATIENT
  Age: 57 Year
  Sex: Female

DRUGS (4)
  1. RAMIPRIL (RAMIPRIL) [Suspect]
     Indication: HYPERTENSION
     Route: 048
     Dates: end: 20130927
  2. TOLEP [Suspect]
     Indication: BIPOLAR DISORDER
     Dosage: 300 MG, 1 D ORAL
     Route: 048
     Dates: end: 20130927
  3. LEXOTAN (BROMAZEPAM) [Concomitant]
  4. ZYPREXA (OLANZAPINE) [Concomitant]

REACTIONS (4)
  - Hyponatraemia [None]
  - Balance disorder [None]
  - Hypoaesthesia [None]
  - Carpal tunnel syndrome [None]
